FAERS Safety Report 5211463-6 (Version None)
Quarter: 2007Q1

REPORT INFORMATION
  Report Type: 
  Country: None (occurrence: None)
  Receive Date: 20070116
  Receipt Date: 20070109
  Transmission Date: 20070707
  Serious: Yes (Hospitalization)
  Sender: FDA-Public Use
  Company Number: SPV1-2006-01148

PATIENT
  Age: 11 Year
  Sex: Male

DRUGS (2)
  1. DAYTRANA [Suspect]
     Indication: ATTENTION DEFICIT/HYPERACTIVITY DISORDER
     Dosage: 10 MG, TRANSDERMAL
     Route: 062
     Dates: start: 20061001, end: 20061004
  2. CONCERTA [Concomitant]

REACTIONS (2)
  - ANAPHYLACTIC REACTION [None]
  - RASH ERYTHEMATOUS [None]
